FAERS Safety Report 9245959 (Version 2)
Quarter: 2013Q2

REPORT INFORMATION
  Report Type: Spontaneous
  Country: US (occurrence: US)
  Receive Date: 20130422
  Receipt Date: 20130507
  Transmission Date: 20140414
  Serious: Yes (Hospitalization, Other)
  Sender: FDA-Public Use
  Company Number: US-PFIZER INC-2013121191

PATIENT
  Age: 70 Year
  Sex: Female
  Weight: 62.13 kg

DRUGS (3)
  1. NEURONTIN [Suspect]
     Indication: SCIATICA
     Dosage: 300 MG, 3X/DAY
     Route: 048
  2. CALCIUM [Concomitant]
     Dosage: UNK
  3. ASPIRIN [Concomitant]
     Dosage: 81 MG, UNK

REACTIONS (2)
  - Hernia [Unknown]
  - Neck mass [Unknown]
